FAERS Safety Report 12551438 (Version 4)
Quarter: 2025Q2

REPORT INFORMATION
  Report Type: Report from Study
  Country: CA (occurrence: CA)
  Receive Date: 20160713
  Receipt Date: 20250509
  Transmission Date: 20250717
  Serious: Yes (Hospitalization)
  Sender: ROCHE
  Company Number: CA-002147023-PHHY2014CA140177

PATIENT
  Age: 77 Year
  Sex: Male
  Weight: 70 kg

DRUGS (5)
  1. XOLAIR [Suspect]
     Active Substance: OMALIZUMAB
     Indication: Asthma
     Route: 058
     Dates: start: 20141021
  2. XOLAIR [Suspect]
     Active Substance: OMALIZUMAB
     Route: 058
  3. VENTOLIN [Concomitant]
     Active Substance: ALBUTEROL SULFATE
     Indication: Product used for unknown indication
     Dosage: 2 DOSAGE FORM, QID (2 INHIATIONS)
  4. SPIRIVA [Concomitant]
     Active Substance: TIOTROPIUM BROMIDE MONOHYDRATE
     Indication: Product used for unknown indication
     Route: 065
  5. SINGULAIR [Concomitant]
     Active Substance: MONTELUKAST SODIUM
     Indication: Product used for unknown indication
     Route: 065

REACTIONS (7)
  - Bone disorder [Recovered/Resolved]
  - Hypoacusis [Unknown]
  - Slow speech [Unknown]
  - Dizziness [Unknown]
  - Hypersensitivity [Unknown]
  - Asthma [Unknown]
  - Weight decreased [Unknown]

NARRATIVE: CASE EVENT DATE: 20141021
